FAERS Safety Report 9924839 (Version 1)
Quarter: 2014Q1

REPORT INFORMATION
  Report Type: Spontaneous
  Country: US (occurrence: None)
  Receive Date: 20140224
  Receipt Date: 20140224
  Transmission Date: 20141002
  Serious: Yes (Disabling)
  Sender: FDA-Public Use
  Company Number: None

PATIENT
  Age: 12 Year
  Sex: Male
  Weight: 44 kg

DRUGS (2)
  1. DIVALPROEX SODIUM ER [Suspect]
     Indication: EPILEPSY
     Route: 048
     Dates: start: 20121130, end: 20130919
  2. DIVALPROEX SODIUM ER [Suspect]
     Indication: PETIT MAL EPILEPSY
     Route: 048
     Dates: start: 20121130, end: 20130919

REACTIONS (7)
  - Emotional disorder [None]
  - Panic attack [None]
  - Depression [None]
  - Headache [None]
  - Pain in extremity [None]
  - Conversion disorder [None]
  - Crying [None]
